FAERS Safety Report 5221824-7 (Version None)
Quarter: 2007Q1

REPORT INFORMATION
  Report Type: 
  Country: None (occurrence: None)
  Receive Date: 20070129
  Receipt Date: 20070115
  Transmission Date: 20070707
  Serious: No
  Sender: FDA-Public Use
  Company Number: PHBS2006TW19262

PATIENT
  Age: 55 Year
  Sex: Male

DRUGS (3)
  1. MYFORTIC [Suspect]
     Indication: RENAL TRANSPLANT
     Dosage: 7 TAB/D
     Route: 048
  2. MYFORTIC [Suspect]
     Dosage: 1 DF, BID
     Route: 048
  3. TACROLIMUS [Suspect]
     Indication: RENAL TRANSPLANT
     Dosage: 2.5 MG, BID

REACTIONS (1)
  - DIPLOPIA [None]
